FAERS Safety Report 5333781-3 (Version None)
Quarter: 2007Q2

REPORT INFORMATION
  Report Type: 
  Country: None (occurrence: None)
  Receive Date: 20070524
  Receipt Date: 20070515
  Transmission Date: 20071010
  Serious: Yes (Hospitalization, Other)
  Sender: FDA-Public Use
  Company Number: US-ELI_LILLY_AND_COMPANY-US200705004342

PATIENT
  Age: 53 Year
  Sex: Female

DRUGS (3)
  1. HUMALOG [Suspect]
     Indication: DIABETES MELLITUS
  2. TOPROL-XL [Concomitant]
     Indication: BLOOD PRESSURE INCREASED
     Dosage: UNK UNK, DAILY (1/D)
  3. LANTUS [Concomitant]
     Indication: DIABETES MELLITUS
     Dosage: 90 U, EACH EVENING

REACTIONS (9)
  - BLOOD GLUCOSE DECREASED [None]
  - BLOOD GLUCOSE INCREASED [None]
  - CONFUSIONAL STATE [None]
  - DIARRHOEA [None]
  - HEPATIC MASS [None]
  - HYPERTENSION [None]
  - LOSS OF CONSCIOUSNESS [None]
  - STRESS [None]
  - WRONG DRUG ADMINISTERED [None]
